FAERS Safety Report 24527779 (Version 2)
Quarter: 2024Q4

REPORT INFORMATION
  Report Type: Spontaneous
  Country: US (occurrence: US)
  Receive Date: 20241021
  Receipt Date: 20241107
  Transmission Date: 20250115
  Serious: No
  Sender: TEVA
  Company Number: US-TEVA-VS-3249491

PATIENT
  Sex: Female

DRUGS (1)
  1. CLONAZEPAM [Suspect]
     Active Substance: CLONAZEPAM
     Indication: Product used for unknown indication
     Route: 065

REACTIONS (8)
  - Feeling abnormal [Unknown]
  - Palpitations [Unknown]
  - Drug ineffective [Unknown]
  - Product odour abnormal [Unknown]
  - Product quality issue [Unknown]
  - Sleep disorder [Unknown]
  - Anxiety [Unknown]
  - Adverse drug reaction [Unknown]
